FAERS Safety Report 6427450-6 (Version None)
Quarter: 2009Q4

REPORT INFORMATION
  Report Type: 
  Country: None (occurrence: None)
  Receive Date: 20091030
  Receipt Date: 20091025
  Transmission Date: 20100525
  Serious: Yes (Hospitalization, Other)
  Sender: FDA-Public Use
  Company Number: 2006-03-0707

PATIENT
  Age: 40 Year
  Sex: Female
  Weight: 61.2356 kg

DRUGS (6)
  1. REBETOL [Suspect]
     Indication: HEPATITIS C
     Dosage: PO
     Route: 048
     Dates: start: 20060216, end: 20060331
  2. INTRON A [Suspect]
     Indication: HEPATITIS C
     Dosage: 10 MIU;QD; 5 MIU;QD
     Dates: start: 20060216, end: 20060301
  3. INTRON A [Suspect]
     Indication: HEPATITIS C
     Dosage: 10 MIU;QD; 5 MIU;QD
     Dates: start: 20060301, end: 20060331
  4. ZELNORM [Concomitant]
  5. ACIPHEX [Concomitant]
  6. LEXAPRO [Concomitant]

REACTIONS (21)
  - BALANCE DISORDER [None]
  - DEHYDRATION [None]
  - DEPRESSION [None]
  - DIARRHOEA [None]
  - DISTURBANCE IN ATTENTION [None]
  - FEELING ABNORMAL [None]
  - FLUID INTAKE REDUCED [None]
  - HAEMATEMESIS [None]
  - HEADACHE [None]
  - HYPOKALAEMIA [None]
  - MUSCLE TWITCHING [None]
  - MUSCULAR WEAKNESS [None]
  - NAUSEA [None]
  - PAIN IN EXTREMITY [None]
  - PALPITATIONS [None]
  - PARTNER STRESS [None]
  - RESTLESS LEGS SYNDROME [None]
  - TEARFULNESS [None]
  - URINARY TRACT INFECTION [None]
  - VOMITING [None]
  - WEIGHT DECREASED [None]
